FAERS Safety Report 23560779 (Version 1)
Quarter: 2024Q1

REPORT INFORMATION
  Report Type: Spontaneous
  Country: CN (occurrence: CN)
  Receive Date: 20240223
  Receipt Date: 20240223
  Transmission Date: 20240410
  Serious: Yes (Hospitalization, Other)
  Sender: FDA-Public Use
  Company Number: CN-009507513-2402CHN006852

PATIENT
  Age: 8 Year
  Sex: Male
  Weight: 26.3 kg

DRUGS (4)
  1. NOXAFIL [Suspect]
     Active Substance: POSACONAZOLE
     Indication: Candida infection
     Dosage: 120 MILLIGRAM, TID
     Route: 048
     Dates: start: 20220317, end: 20220521
  2. VINCRISTINE [Suspect]
     Active Substance: VINCRISTINE
     Indication: T-cell lymphoma stage III
     Dosage: 1.5 MG/M2/D (1.45 MG), D1, D8
     Dates: start: 20220517, end: 20220521
  3. DOXORUBICIN [Concomitant]
     Active Substance: DOXORUBICIN
     Indication: T-cell lymphoma stage III
     Dosage: 30 MG/M2/D (D1, D8)
     Dates: start: 20220517
  4. DEXAMETHASONE [Concomitant]
     Active Substance: DEXAMETHASONE
     Indication: T-cell lymphoma stage III
     Dosage: 6 MG/M2/D
     Dates: start: 20220517

REACTIONS (4)
  - Neurotoxicity [Recovering/Resolving]
  - Drug interaction [Unknown]
  - Product use in unapproved indication [Unknown]
  - Product administered to patient of inappropriate age [Unknown]

NARRATIVE: CASE EVENT DATE: 20220317
